FAERS Safety Report 10363203 (Version 2)
Quarter: 2014Q3

REPORT INFORMATION
  Report Type: Spontaneous
  Country: JP (occurrence: JP)
  Receive Date: 20140805
  Receipt Date: 20140805
  Transmission Date: 20150326
  Serious: Yes (Other)
  Sender: FDA-Public Use
  Company Number: JP-ABBVIE-14P-087-1265714-00

PATIENT
  Age: 24 Year
  Sex: Female

DRUGS (4)
  1. CLARITHROMYCIN. [Suspect]
     Active Substance: CLARITHROMYCIN
     Indication: PYREXIA
  2. CLARITHROMYCIN. [Suspect]
     Active Substance: CLARITHROMYCIN
     Indication: OROPHARYNGEAL PAIN
  3. CEFCAPENE [Suspect]
     Active Substance: CEFCAPENE
     Indication: PYREXIA
  4. CEFCAPENE [Suspect]
     Active Substance: CEFCAPENE
     Indication: OROPHARYNGEAL PAIN

REACTIONS (3)
  - Abdominal pain [Recovered/Resolved]
  - Neurotoxicity [Recovered/Resolved]
  - Diarrhoea [Recovered/Resolved]
